FAERS Safety Report 22072169 (Version 1)
Quarter: 2023Q1

REPORT INFORMATION
  Report Type: Spontaneous
  Country: US (occurrence: US)
  Receive Date: 20230308
  Receipt Date: 20230308
  Transmission Date: 20230417
  Serious: No
  Sender: FDA-Public Use
  Company Number: US-BIOGEN-2023BI01191206

PATIENT
  Sex: Female

DRUGS (2)
  1. TECFIDERA [Suspect]
     Active Substance: DIMETHYL FUMARATE
     Indication: Product used for unknown indication
     Route: 050
  2. CEFDINIR [Suspect]
     Active Substance: CEFDINIR
     Indication: Streptococcus test positive
     Route: 050

REACTIONS (5)
  - Nasopharyngitis [Unknown]
  - Streptococcus test positive [Unknown]
  - Abdominal discomfort [Unknown]
  - Flushing [Recovered/Resolved]
  - Diarrhoea [Unknown]
